FAERS Safety Report 7309119-9 (Version None)
Quarter: 2011Q1

REPORT INFORMATION
  Report Type: 
  Country: None (occurrence: None)
  Receive Date: 20110223
  Receipt Date: 20110217
  Transmission Date: 20110831
  Serious: Yes (Death, Hospitalization)
  Sender: FDA-Public Use
  Company Number: PHHY2011JP12880

PATIENT
  Age: 60 Year
  Sex: Male

DRUGS (3)
  1. DEXAMETHASONE [Suspect]
     Dosage: UNK, DAY 1-4
  2. DEXAMETHASONE [Suspect]
     Dosage: UNK, DAY 17-20
  3. DEXAMETHASONE [Suspect]
     Dosage: UNK, DAY 9-12

REACTIONS (10)
  - DIARRHOEA HAEMORRHAGIC [None]
  - GASTROINTESTINAL MUCOSAL EXFOLIATION [None]
  - GASTROINTESTINAL EROSION [None]
  - DEHYDRATION [None]
  - AMOEBIASIS [None]
  - INTESTINAL ULCER [None]
  - AMOEBIC COLITIS [None]
  - PYREXIA [None]
  - ENTEROCOLITIS HAEMORRHAGIC [None]
  - CYTOMEGALOVIRUS COLITIS [None]
